FAERS Safety Report 7531114-5 (Version None)
Quarter: 2011Q2

REPORT INFORMATION
  Report Type: 
  Country: None (occurrence: None)
  Receive Date: 20110608
  Receipt Date: 20110603
  Transmission Date: 20111010
  Serious: Yes (Other)
  Sender: FDA-Public Use
  Company Number: US-JNJFOC-20100706627

PATIENT
  Sex: Male

DRUGS (2)
  1. LEVAQUIN [Suspect]
     Indication: SINUSITIS
     Route: 048
     Dates: start: 20070517, end: 20070526
  2. METHYLPREDNISOLONE [Suspect]
     Indication: INFLAMMATION
     Route: 065

REACTIONS (2)
  - TENOSYNOVITIS [None]
  - TENDON RUPTURE [None]
